FAERS Safety Report 6719607-1 (Version None)
Quarter: 2010Q2

REPORT INFORMATION
  Report Type: 
  Country: None (occurrence: None)
  Receive Date: 20100511
  Receipt Date: 20100505
  Transmission Date: 20101027
  Serious: Yes (Other)
  Sender: FDA-Public Use
  Company Number: AU-WYE-G06084510

PATIENT
  Sex: Female

DRUGS (1)
  1. EFFEXOR XR [Suspect]
     Indication: ANXIETY
     Dosage: 75MG
     Dates: start: 20100504

REACTIONS (6)
  - ACTIVITIES OF DAILY LIVING IMPAIRED [None]
  - EUPHORIC MOOD [None]
  - FEELING ABNORMAL [None]
  - INSOMNIA [None]
  - MYDRIASIS [None]
  - YAWNING [None]
